FAERS Safety Report 17661506 (Version 1)
Quarter: 2020Q2

REPORT INFORMATION
  Report Type: Spontaneous
  Country: US (occurrence: US)
  Receive Date: 20200413
  Receipt Date: 20200413
  Transmission Date: 20200713
  Serious: No
  Sender: FDA-Public Use
  Company Number: US-VERTEX PHARMACEUTICALS-2020-003208

PATIENT
  Age: 69 Year
  Sex: Male

DRUGS (1)
  1. TRIKAFTA [Suspect]
     Active Substance: ELEXACAFTOR\IVACAFTOR\TEZACAFTOR
     Indication: CYSTIC FIBROSIS
     Dosage: 100 MG ELEXACAFTOR/ 50 MG TEZACAFTOR/ 75 MG IVACAFTOR; 150MG IVACAFTOR
     Route: 048
     Dates: start: 201901

REACTIONS (5)
  - Blood pressure increased [Unknown]
  - Blood iron decreased [Unknown]
  - Asthma [Recovering/Resolving]
  - Headache [Recovering/Resolving]
  - Dyspnoea [Unknown]

NARRATIVE: CASE EVENT DATE: 20200127
